FAERS Safety Report 7828190-9 (Version None)
Quarter: 2011Q4

REPORT INFORMATION
  Report Type: 
  Country: None (occurrence: None)
  Receive Date: 20111020
  Receipt Date: 20111006
  Transmission Date: 20120403
  Serious: Yes (Death, Hospitalization, Other)
  Sender: FDA-Public Use
  Company Number: US-ELI_LILLY_AND_COMPANY-US201110001653

PATIENT
  Sex: Female

DRUGS (5)
  1. GLUCOPHAGE [Concomitant]
  2. AMBIEN [Concomitant]
  3. LANOXIN [Concomitant]
  4. FORTEO [Suspect]
     Indication: OSTEOPOROSIS
     Dosage: 20 UG, QD
     Dates: start: 20060101, end: 20070101
  5. LEVOTHROID [Concomitant]

REACTIONS (7)
  - NAUSEA [None]
  - CARDIAC ARREST [None]
  - INFECTION [None]
  - CARDIAC PACEMAKER INSERTION [None]
  - APHAGIA [None]
  - MALAISE [None]
  - MULTIPLE ALLERGIES [None]
